FAERS Safety Report 5911381-1 (Version None)
Quarter: 2008Q4

REPORT INFORMATION
  Report Type: 
  Country: None (occurrence: None)
  Receive Date: 20081007
  Receipt Date: 20080801
  Transmission Date: 20090506
  Serious: No
  Sender: FDA-Public Use
  Company Number: US-ASTRAZENECA-2008UW15197

PATIENT
  Age: 58 Year
  Sex: Female
  Weight: 85.3 kg

DRUGS (3)
  1. ARIMIDEX [Suspect]
     Indication: BREAST NEOPLASM
     Route: 048
  2. IBANDRONATE [Concomitant]
  3. LASIX [Concomitant]

REACTIONS (2)
  - ARTHRITIS [None]
  - NEUROPATHY PERIPHERAL [None]
